FAERS Safety Report 4525141-X (Version None)
Quarter: 2004Q4

REPORT INFORMATION
  Report Type: 
  Country: None (occurrence: None)
  Receive Date: 20041117
  Receipt Date: 20040113
  Transmission Date: 20050328
  Serious: Yes (Other)
  Sender: FDA-Public Use
  Company Number: 2004S1000141

PATIENT
  Age: 45 Year
  Sex: Male

DRUGS (5)
  1. CLOZAPINE [Suspect]
     Indication: PSYCHOTIC DISORDER
     Dosage: 200MG BID, ORAL
     Route: 048
     Dates: start: 20020101, end: 20040105
  2. CLOZAPINE [Suspect]
     Indication: SCHIZOPHRENIA
     Dosage: 200MG BID, ORAL
     Route: 048
     Dates: start: 20020101, end: 20040105
  3. IRON [Concomitant]
  4. LEVOTHYROXINE SODIUM [Concomitant]
  5. MULTIVITAMIN [Concomitant]

REACTIONS (1)
  - LEUKOPENIA [None]
